FAERS Safety Report 8845227 (Version 3)
Quarter: 2012Q4

REPORT INFORMATION
  Report Type: Spontaneous
  Country: JP (occurrence: None)
  Receive Date: 20121015
  Receipt Date: 20121214
  Transmission Date: 20130627
  Serious: Yes (Hospitalization)
  Sender: FDA-Public Use
  Company Number: 2012-003613

PATIENT
  Age: 64 Year
  Sex: Female

DRUGS (5)
  1. BENET [Suspect]
     Indication: OSTEOPOROSIS
     Route: 048
     Dates: start: 2004
  2. RHEUMATREX [Concomitant]
  3. FOLIAMIN (FOLIC ACID) [Concomitant]
  4. PROGRAFT (TACROLIMUS) [Concomitant]
  5. CELECOX (CELECOXIB) [Concomitant]

REACTIONS (8)
  - Atypical femur fracture [None]
  - Femur fracture [None]
  - Fall [None]
  - Bone formation decreased [None]
  - Arthralgia [None]
  - Gait disturbance [None]
  - Pain in extremity [None]
  - Limb deformity [None]
